FAERS Safety Report 22259137 (Version 2)
Quarter: 2023Q2

REPORT INFORMATION
  Report Type: Report from Study
  Country: US (occurrence: US)
  Receive Date: 20230427
  Receipt Date: 20230613
  Transmission Date: 20230721
  Serious: Yes (Other)
  Sender: FDA-Public Use
  Company Number: US-MALLINCKRODT-MNK202301217

PATIENT
  Sex: Female

DRUGS (1)
  1. CORTICOTROPIN [Suspect]
     Active Substance: CORTICOTROPIN
     Indication: Punctate keratitis
     Dosage: UNKNOWN

REACTIONS (7)
  - Immunosuppression [Unknown]
  - Corneal disorder [Unknown]
  - Corneal transplant [Unknown]
  - Pharyngitis [Unknown]
  - Bronchitis [Unknown]
  - Unevaluable event [Unknown]
  - Osteoporosis [Unknown]
